FAERS Safety Report 6441240-X (Version None)
Quarter: 2009Q4

REPORT INFORMATION
  Report Type: 
  Country: None (occurrence: None)
  Receive Date: 20091116
  Receipt Date: 20091102
  Transmission Date: 20100525
  Serious: Yes (Hospitalization)
  Sender: FDA-Public Use
  Company Number: JP-AMGEN-US195033

PATIENT
  Sex: Female

DRUGS (5)
  1. ENBREL [Suspect]
     Indication: RHEUMATOID ARTHRITIS
     Route: 058
     Dates: start: 20060310, end: 20060623
  2. ISCOTIN [Concomitant]
     Route: 065
  3. SELBEX [Concomitant]
     Route: 065
  4. SALAZOPYRIN [Concomitant]
     Route: 065
  5. VOLTAREN [Concomitant]
     Route: 065

REACTIONS (2)
  - BREAST CANCER RECURRENT [None]
  - METASTASIS [None]
